FAERS Safety Report 10927836 (Version 8)
Quarter: 2015Q2

REPORT INFORMATION
  Report Type: Spontaneous
  Country: GB (occurrence: GB)
  Receive Date: 20150319
  Receipt Date: 20150429
  Transmission Date: 20150821
  Serious: Yes (Other)
  Sender: FDA-Public Use
  Company Number: PHHY2015GB031926

PATIENT
  Sex: Male

DRUGS (18)
  1. APOMORPHINE [Suspect]
     Active Substance: APOMORPHINE
     Indication: PRODUCT USED FOR UNKNOWN INDICATION
     Route: 058
     Dates: start: 2007, end: 2007
  2. AMANTADINE [Suspect]
     Active Substance: AMANTADINE
     Dosage: 100 MG, BID (200 MG DAILY)
     Route: 065
     Dates: start: 200811
  3. CO-CARELDOPA [Suspect]
     Active Substance: CARBIDOPA\LEVODOPA
     Dosage: 750 MG, (62.5 MG,12 IN 1 D)
     Route: 065
     Dates: start: 200909, end: 201007
  4. BENSERAZIDE [Suspect]
     Active Substance: BENSERAZIDE
     Indication: PRODUCT USED FOR UNKNOWN INDICATION
     Dosage: UNK
     Route: 065
     Dates: start: 2002, end: 2007
  5. AMANTADINE [Suspect]
     Active Substance: AMANTADINE
     Dosage: 50 MG, BID
     Route: 065
     Dates: start: 201007
  6. SELEGILINE [Suspect]
     Active Substance: SELEGILINE
     Indication: PRODUCT USED FOR UNKNOWN INDICATION
     Dosage: 10 MG, QD
     Route: 065
     Dates: start: 1995
  7. AMANTADINE [Suspect]
     Active Substance: AMANTADINE
     Indication: PRODUCT USED FOR UNKNOWN INDICATION
     Dosage: UNK
     Route: 065
     Dates: start: 2002, end: 2007
  8. AMANTADINE [Suspect]
     Active Substance: AMANTADINE
     Dosage: UNK
     Route: 065
  9. CO-CARELDOPA [Suspect]
     Active Substance: CARBIDOPA\LEVODOPA
     Indication: PRODUCT USED FOR UNKNOWN INDICATION
     Dosage: DOSE 5 TIMES A DAY
     Route: 065
     Dates: start: 2000, end: 200909
  10. CO-CARELDOPA [Suspect]
     Active Substance: CARBIDOPA\LEVODOPA
     Dosage: 62.5 MG, (MG BETWEEN 10 AND 12 A DAY)
     Route: 065
     Dates: start: 201007
  11. AMANTADINE [Suspect]
     Active Substance: AMANTADINE
     Dosage: 50 MG, BID (100 MG DAILY)
     Route: 065
     Dates: start: 201007
  12. ORPHENADRINE [Suspect]
     Active Substance: ORPHENADRINE
     Indication: PRODUCT USED FOR UNKNOWN INDICATION
     Dosage: 50 MG, TID (150 MG DAILY)
     Route: 065
     Dates: start: 201007
  13. ROPINIROLE. [Suspect]
     Active Substance: ROPINIROLE
     Indication: PRODUCT USED FOR UNKNOWN INDICATION
     Dosage: UNK
     Route: 065
     Dates: start: 2002, end: 2007
  14. ROTIGOTINE [Concomitant]
     Active Substance: ROTIGOTINE
     Indication: PRODUCT USED FOR UNKNOWN INDICATION
     Dosage: UNK
     Route: 065
     Dates: start: 2007
  15. LEVODOPA [Suspect]
     Active Substance: LEVODOPA
     Indication: PRODUCT USED FOR UNKNOWN INDICATION
     Dosage: UNK
     Route: 065
     Dates: start: 2002, end: 2007
  16. ENTACAPONE. [Suspect]
     Active Substance: ENTACAPONE
     Indication: PRODUCT USED FOR UNKNOWN INDICATION
     Dosage: UNK
     Route: 065
     Dates: start: 2002, end: 200909
  17. PRAMIPEXOLE [Suspect]
     Active Substance: PRAMIPEXOLE
     Indication: PRODUCT USED FOR UNKNOWN INDICATION
     Dosage: UNK
     Route: 065
     Dates: start: 2002, end: 2007
  18. ROPINIROLE. [Suspect]
     Active Substance: ROPINIROLE
     Dosage: 24 MG, QD, MODIFIED RELEASE (DOSE INCREASED)
     Route: 065
     Dates: start: 200909

REACTIONS (15)
  - Transient ischaemic attack [Unknown]
  - Skin mass [Recovered/Resolved]
  - Muscular weakness [Unknown]
  - Decreased appetite [Recovered/Resolved]
  - Dyskinesia [Recovered/Resolved]
  - Tremor [Recovered/Resolved]
  - Balance disorder [Unknown]
  - Depression [Recovering/Resolving]
  - Feeling abnormal [Unknown]
  - Memory impairment [Recovering/Resolving]
  - Hyperhidrosis [Recovered/Resolved]
  - Recall phenomenon [Recovering/Resolving]
  - Haemorrhage [Recovered/Resolved]
  - Facial paresis [Unknown]
  - Headache [Recovered/Resolved]

NARRATIVE: CASE EVENT DATE: 2002
